FAERS Safety Report 21464597 (Version 2)
Quarter: 2022Q4

REPORT INFORMATION
  Report Type: Spontaneous
  Country: US (occurrence: US)
  Receive Date: 20221017
  Receipt Date: 20221027
  Transmission Date: 20230112
  Serious: No
  Sender: FDA-Public Use
  Company Number: US-IDORSIA-001523-2022-US

PATIENT
  Sex: Male

DRUGS (3)
  1. QUVIVIQ [Suspect]
     Active Substance: DARIDOREXANT
     Indication: Insomnia
     Dosage: 50 MG, QD
     Route: 048
     Dates: start: 20220909, end: 20221001
  2. QUVIVIQ [Suspect]
     Active Substance: DARIDOREXANT
     Dosage: 100 MG, QD
     Route: 048
  3. TEMAZEPAM [Concomitant]
     Active Substance: TEMAZEPAM
     Dosage: 22.5 MG

REACTIONS (2)
  - Drug ineffective [Unknown]
  - Overdose [Unknown]
